FAERS Safety Report 9102976 (Version 3)
Quarter: 2013Q1

REPORT INFORMATION
  Report Type: Spontaneous
  Country: JP (occurrence: JP)
  Receive Date: 20130219
  Receipt Date: 20130304
  Transmission Date: 20140127
  Serious: Yes (Other)
  Sender: FDA-Public Use
  Company Number: JP-PFIZER INC-2013060682

PATIENT
  Sex: Male

DRUGS (6)
  1. INLYTA [Suspect]
     Dosage: UNK
     Route: 048
  2. LIPIDIL [Suspect]
     Indication: HYPERLIPIDAEMIA
  3. ACTOS [Concomitant]
     Indication: DIABETES MELLITUS
  4. NESINA [Concomitant]
  5. RENIVACE [Concomitant]
  6. EPADEL [Concomitant]

REACTIONS (1)
  - Blood creatine phosphokinase increased [Recovering/Resolving]
